FAERS Safety Report 20939025 (Version 1)
Quarter: 2022Q2

REPORT INFORMATION
  Report Type: Report from Study
  Country: US (occurrence: US)
  Receive Date: 20220609
  Receipt Date: 20220609
  Transmission Date: 20220721
  Serious: Yes (Hospitalization)
  Sender: FDA-Public Use
  Company Number: US-ABBVIE-22P-163-4402478-00

PATIENT
  Age: 5 Year
  Sex: Female
  Weight: 15 kg

DRUGS (12)
  1. VENETOCLAX [Suspect]
     Active Substance: VENETOCLAX
     Indication: Recurrent cancer
     Dosage: DAY 1-10 OF EACH 28 DAY CYCLE;
     Route: 048
     Dates: start: 20220131
  2. VENETOCLAX [Suspect]
     Active Substance: VENETOCLAX
     Indication: Refractory cancer
  3. CYCLOPHOSPHAMIDE [Suspect]
     Active Substance: CYCLOPHOSPHAMIDE
     Indication: Recurrent cancer
     Dosage: DAY 1-DAY 4 EVERY 28 CYCLE
     Route: 048
     Dates: start: 20220202
  4. CYCLOPHOSPHAMIDE [Suspect]
     Active Substance: CYCLOPHOSPHAMIDE
     Indication: Refractory cancer
  5. TOPOTECAN HYDROCHLORIDE [Suspect]
     Active Substance: TOPOTECAN HYDROCHLORIDE
     Indication: Recurrent cancer
     Dosage: D1-D4 OF EACH 28 DAY CYCLE
     Route: 048
     Dates: start: 20220202
  6. TOPOTECAN HYDROCHLORIDE [Suspect]
     Active Substance: TOPOTECAN HYDROCHLORIDE
     Indication: Refractory cancer
  7. LEVOTHYROXINE [Concomitant]
     Active Substance: LEVOTHYROXINE
     Indication: Hypothyroidism
     Route: 048
     Dates: start: 20181105
  8. HYDROCORTISONE [Concomitant]
     Active Substance: HYDROCORTISONE
     Indication: Optic nerve disorder
     Route: 042
     Dates: start: 20181115
  9. GCSF (FILGRASTIM) [Concomitant]
     Indication: Prophylaxis
     Route: 042
     Dates: start: 20220213, end: 20220228
  10. GCSF (FILGRASTIM) [Concomitant]
     Route: 042
     Dates: start: 20220325, end: 20220331
  11. GCSF (FILGRASTIM) [Concomitant]
     Route: 042
     Dates: start: 20220429
  12. ROMIPLOSTIM [Concomitant]
     Active Substance: ROMIPLOSTIM
     Indication: Product used for unknown indication
     Dates: start: 20220504

REACTIONS (3)
  - Platelet count decreased [Not Recovered/Not Resolved]
  - Anaemia [Recovered/Resolved]
  - Rhinovirus infection [Not Recovered/Not Resolved]

NARRATIVE: CASE EVENT DATE: 20220505
